FAERS Safety Report 18591286 (Version 3)
Quarter: 2020Q4

REPORT INFORMATION
  Report Type: Report from Study
  Country: IN (occurrence: IN)
  Receive Date: 20201208
  Receipt Date: 20201229
  Transmission Date: 20210114
  Serious: Yes (Hospitalization)
  Sender: FDA-Public Use
  Company Number: IN-PFIZER INC-2020468282

PATIENT
  Age: 60 Year
  Sex: Female
  Weight: 56 kg

DRUGS (5)
  1. VERTIN [BETAHISTINE HYDROCHLORIDE] [Concomitant]
     Indication: VERTIGO
     Dosage: 25 MG, 2X/DAY
     Route: 048
     Dates: start: 20201109
  2. KABIPRO [Concomitant]
     Dosage: 2 SCOOP, 2X/DAY
     Dates: start: 20201109
  3. GABAPIN ME [Concomitant]
     Indication: NEURALGIA
     Dosage: 300 MG, HS
     Route: 048
     Dates: start: 20201109
  4. ROSUVASTATIN. [Concomitant]
     Active Substance: ROSUVASTATIN
     Indication: HYPERCHOLESTEROLAEMIA
     Dosage: 20 MG, HS
     Route: 048
     Dates: start: 20201109
  5. LORLATINIB [Suspect]
     Active Substance: LORLATINIB
     Indication: NON-SMALL CELL LUNG CANCER
     Dosage: 100 MG, 1X/DAY
     Route: 048
     Dates: start: 20201109, end: 20201119

REACTIONS (1)
  - Altered state of consciousness [Recovered/Resolved]

NARRATIVE: CASE EVENT DATE: 20201119
